FAERS Safety Report 4327622-0 (Version None)
Quarter: 2004Q1

REPORT INFORMATION
  Report Type: 
  Country: None (occurrence: None)
  Receive Date: 20040325
  Receipt Date: 20040312
  Transmission Date: 20041129
  Serious: Yes (Hospitalization)
  Sender: FDA-Public Use
  Company Number: 04P-056-0253469-00

PATIENT
  Age: 30 Year
  Sex: Female
  Weight: 83 kg

DRUGS (2)
  1. MERIDIA [Suspect]
     Indication: OBESITY
     Dosage: 10 MG, 1 IN 1 D, PER ORAL
     Route: 048
     Dates: start: 20030701, end: 20031031
  2. NOMEGESTROL [Suspect]
     Indication: CONTRACEPTION
     Dosage: 1 DOSAGE FORMS, PER ORAL
     Route: 048
     Dates: start: 20010615, end: 20031031

REACTIONS (2)
  - RETINAL ARTERY OCCLUSION [None]
  - VASOSPASM [None]
